FAERS Safety Report 8003357-8 (Version None)
Quarter: 2011Q4

REPORT INFORMATION
  Report Type: 
  Country: None (occurrence: None)
  Receive Date: 20111222
  Receipt Date: 20111216
  Transmission Date: 20120403
  Serious: No
  Sender: FDA-Public Use
  Company Number: US-B.I. PHARMACEUTICALS,INC./RIDGEFIELD-2011-BP-28274BP

PATIENT
  Sex: Female

DRUGS (11)
  1. FISH OIL [Concomitant]
     Indication: ROUTINE HEALTH MAINTENANCE
     Route: 048
     Dates: start: 19800101
  2. SENOKOT [Concomitant]
     Indication: CONSTIPATION
     Route: 048
     Dates: start: 20100101
  3. CALCIUM CARBONATE [Concomitant]
     Indication: ROUTINE HEALTH MAINTENANCE
     Route: 048
     Dates: start: 19800101
  4. PRADAXA [Suspect]
     Indication: ATRIAL FIBRILLATION
     Dosage: 300 MG
     Route: 048
     Dates: start: 20110301
  5. ATENOLOL [Concomitant]
     Indication: HYPERTENSION
     Dosage: 50 MG
     Route: 048
     Dates: start: 20100101
  6. ROPINIROLE [Concomitant]
     Indication: MUSCLE SPASMS
     Dosage: 25 MG
     Route: 048
     Dates: start: 20100101
  7. PREDNISONE TAB [Concomitant]
     Indication: ARTHRITIS
     Dosage: 5 MG
     Route: 048
     Dates: start: 20080101
  8. SIMVASTATIN [Concomitant]
     Indication: BLOOD CHOLESTEROL INCREASED
     Dosage: 20 MG
     Route: 048
     Dates: start: 20100101
  9. MULTI-VITAMIN [Concomitant]
     Indication: ROUTINE HEALTH MAINTENANCE
     Route: 048
     Dates: start: 19800101
  10. PRANDIN [Concomitant]
     Indication: DIABETES MELLITUS
     Dosage: 6 MG
     Route: 048
     Dates: start: 20100101
  11. FUROSEMIDE [Concomitant]
     Indication: OEDEMA PERIPHERAL
     Dosage: 40 MG
     Route: 048
     Dates: start: 20100101

REACTIONS (1)
  - WOUND COMPLICATION [None]
